FAERS Safety Report 9078937 (Version 1)
Quarter: 2013Q1

REPORT INFORMATION
  Report Type: Report from Study
  Country: US (occurrence: US)
  Receive Date: 20130130
  Receipt Date: 20130130
  Transmission Date: 20140127
  Serious: No
  Sender: FDA-Public Use
  Company Number: US-ABBOTT-12P-163-0956629-00

PATIENT
  Age: 52 Year
  Sex: Male

DRUGS (2)
  1. HUMIRA 40 MG/0.8 ML PEN [Suspect]
     Indication: PSORIASIS
     Dates: start: 201201
  2. LISINOPRIL HCT [Concomitant]
     Indication: BLOOD PRESSURE
     Dosage: 20/12.5MG ONCE DAILY

REACTIONS (1)
  - Influenza like illness [Recovered/Resolved]
